FAERS Safety Report 24142963 (Version 1)
Quarter: 2024Q3

REPORT INFORMATION
  Report Type: Spontaneous
  Country: ZA (occurrence: None)
  Receive Date: 20240726
  Receipt Date: 20240726
  Transmission Date: 20241016
  Serious: Yes (Hospitalization)
  Sender: ASTRAZENECA
  Company Number: 2024A164317

PATIENT
  Age: 51 Year
  Sex: Male

DRUGS (4)
  1. DAPAGLIFLOZIN PROPANEDIOL [Suspect]
     Active Substance: DAPAGLIFLOZIN PROPANEDIOL
     Indication: Diabetes mellitus
     Route: 048
  2. CINNARIZINE [Concomitant]
     Active Substance: CINNARIZINE
     Indication: Nausea
     Route: 048
  3. SYNALEVE [Concomitant]
     Indication: Pain
     Route: 048
  4. GABAPENTIN [Concomitant]
     Active Substance: GABAPENTIN
     Indication: Epilepsy
     Route: 048

REACTIONS (2)
  - Nerve compression [Unknown]
  - Intervertebral disc protrusion [Unknown]
